FAERS Safety Report 8356834-4 (Version None)
Quarter: 2012Q2

REPORT INFORMATION
  Report Type: 
  Country: None (occurrence: None)
  Receive Date: 20120510
  Receipt Date: 20120424
  Transmission Date: 20120825
  Serious: Yes (Other)
  Sender: FDA-Public Use
  Company Number: 2012US-56087

PATIENT
  Age: 30 Year
  Sex: Male

DRUGS (3)
  1. RISPERIDONE [Suspect]
     Indication: CHOREA
     Dosage: 0.5MG
  2. TETRABENAZINE (TETRABENAZINE) [Suspect]
     Indication: PRODUCT USED FOR UNKNOWN INDICATION
     Dosage: 12.5 MG, BID,
  3. CARBIDOPA AND LEVODOPA [Suspect]
     Indication: PRODUCT USED FOR UNKNOWN INDICATION

REACTIONS (5)
  - PARADOXICAL DRUG REACTION [None]
  - FALL [None]
  - SEDATION [None]
  - DRUG INEFFECTIVE [None]
  - GAIT DISTURBANCE [None]
